FAERS Safety Report 25553052 (Version 1)
Quarter: 2025Q3

REPORT INFORMATION
  Report Type: Report from Study
  Country: IN (occurrence: IN)
  Receive Date: 20250715
  Receipt Date: 20250715
  Transmission Date: 20251021
  Serious: Yes (Death, Other)
  Sender: ROCHE
  Company Number: IN-ROCHE-10000334898

PATIENT

DRUGS (6)
  1. RITUXIMAB [Suspect]
     Active Substance: RITUXIMAB
     Indication: Lupus nephritis
     Route: 065
  2. MYCOPHENOLATE MOFETIL [Suspect]
     Active Substance: MYCOPHENOLATE MOFETIL
     Indication: Lupus nephritis
     Route: 048
  3. MYCOPHENOLATE MOFETIL [Suspect]
     Active Substance: MYCOPHENOLATE MOFETIL
     Route: 048
  4. CYCLOPHOSPHAMIDE [Suspect]
     Active Substance: CYCLOPHOSPHAMIDE
     Indication: Lupus nephritis
     Route: 065
  5. AZATHIOPRINE [Suspect]
     Active Substance: AZATHIOPRINE
     Indication: Lupus nephritis
     Route: 065
  6. HYDROXYCHLOROQUINE [Suspect]
     Active Substance: HYDROXYCHLOROQUINE
     Indication: Lupus nephritis
     Route: 065

REACTIONS (21)
  - Endocarditis bacterial [Fatal]
  - Pneumonia [Unknown]
  - Urinary tract infection [Unknown]
  - Sepsis [Unknown]
  - Pulmonary tuberculosis [Unknown]
  - Lymphadenopathy [Unknown]
  - Brucellosis [Unknown]
  - Scrub typhus [Unknown]
  - Leptospirosis [Unknown]
  - Cellulitis [Unknown]
  - Staphylococcal infection [Unknown]
  - Device related infection [Unknown]
  - Psoas abscess [Unknown]
  - Pneumonia influenzal [Unknown]
  - Pneumonia viral [Unknown]
  - Measles [Unknown]
  - Varicella [Unknown]
  - Herpes zoster [Unknown]
  - COVID-19 [Unknown]
  - Gastroenteritis [Unknown]
  - Oral candidiasis [Unknown]
